FAERS Safety Report 14615822 (Version 1)
Quarter: 2018Q1

REPORT INFORMATION
  Report Type: Spontaneous
  Country: IT (occurrence: IT)
  Receive Date: 20180309
  Receipt Date: 20180309
  Transmission Date: 20180509
  Serious: Yes (Hospitalization)
  Sender: FDA-Public Use
  Company Number: IT-AUROBINDO-AUR-APL-2018-011681

PATIENT

DRUGS (2)
  1. BISOPROLOL FILM-COATED TABLETS [Suspect]
     Active Substance: BISOPROLOL
     Indication: MYOCARDIAL ISCHAEMIA
     Dosage: 5 MILLIGRAM, DAILY
     Route: 048
     Dates: start: 20170101, end: 20170530
  2. FUROSEMIDE. [Concomitant]
     Active Substance: FUROSEMIDE
     Indication: PRODUCT USED FOR UNKNOWN INDICATION
     Dosage: 40 MILLIGRAM
     Route: 065

REACTIONS (1)
  - Atrial tachycardia [Unknown]

NARRATIVE: CASE EVENT DATE: 20170530
